FAERS Safety Report 8135596-X (Version None)
Quarter: 2012Q1

REPORT INFORMATION
  Report Type: 
  Country: None (occurrence: None)
  Receive Date: 20120214
  Receipt Date: 20120206
  Transmission Date: 20120608
  Serious: Yes (Disabling)
  Sender: FDA-Public Use
  Company Number: PHHY2012EC011846

PATIENT
  Sex: Female

DRUGS (1)
  1. DIOVAN HCT [Suspect]
     Indication: HYPERTENSION
     Dosage: 1 DF (80MG VALSARTAN/ 12.5 MG HYDROCHLOROTHIAZIDE) DAILY
     Route: 048
     Dates: start: 20090128

REACTIONS (2)
  - JOINT INJURY [None]
  - PATELLA FRACTURE [None]
